FAERS Safety Report 8400032-2 (Version None)
Quarter: 2012Q2

REPORT INFORMATION
  Report Type: 
  Country: None (occurrence: None)
  Receive Date: 20120531
  Receipt Date: 20120524
  Transmission Date: 20120825
  Serious: Yes (Death, Hospitalization)
  Sender: FDA-Public Use
  Company Number: GB-ROCHE-1038577

PATIENT
  Sex: Male
  Weight: 79 kg

DRUGS (5)
  1. HYOSCINE HBR HYT [Concomitant]
     Route: 058
  2. MIDAZOLAM [Concomitant]
     Indication: AGITATION
     Dosage: 2.5 MG-5 MG
     Route: 058
  3. MABTHERA [Suspect]
     Indication: PRODUCT USED FOR UNKNOWN INDICATION
     Dosage: LAST DOSE BEFORE SAE:01/MAR/2011
     Dates: start: 20081007
  4. HALOPERIDOL [Concomitant]
     Indication: NAUSEA
     Dosage: 1.5 MG-3 MG
     Route: 058
  5. DIAMORPHINE [Concomitant]
     Indication: PAIN
     Dosage: 2.5 MG-5 MG
     Route: 058

REACTIONS (7)
  - CARDIAC FAILURE CONGESTIVE [None]
  - ATRIAL FIBRILLATION [None]
  - HYPERTENSION [None]
  - LEFT VENTRICULAR DYSFUNCTION [None]
  - MYOCARDIAL ISCHAEMIA [None]
  - RENAL FAILURE [None]
  - DEATH [None]
